FAERS Safety Report 19674243 (Version 2)
Quarter: 2021Q4

REPORT INFORMATION
  Report Type: Report from Study
  Country: None (occurrence: US)
  Receive Date: 20210809
  Receipt Date: 20211027
  Transmission Date: 20220303
  Serious: Yes (Other)
  Sender: FDA-Public Use
  Company Number: US-ABBVIE-21K-163-4029833-00

PATIENT
  Age: 74 Year
  Sex: Female

DRUGS (3)
  1. RINVOQ [Suspect]
     Active Substance: UPADACITINIB
     Indication: Rheumatoid arthritis
     Dosage: ER
     Route: 048
     Dates: start: 202002, end: 202107
  2. RINVOQ [Suspect]
     Active Substance: UPADACITINIB
     Route: 048
  3. MODERNA COVID-19 VACCINE [Concomitant]
     Active Substance: CX-024414
     Indication: COVID-19 immunisation
     Route: 030

REACTIONS (2)
  - Shoulder arthroplasty [Unknown]
  - Pain [Unknown]

NARRATIVE: CASE EVENT DATE: 20210715
